FAERS Safety Report 6805818-3 (Version None)
Quarter: 2010Q2

REPORT INFORMATION
  Report Type: 
  Country: None (occurrence: None)
  Receive Date: 20100629
  Receipt Date: 20080701
  Transmission Date: 20101027
  Serious: Yes (Other)
  Sender: FDA-Public Use
  Company Number: US-PFIZER INC-2005117520

PATIENT
  Sex: Male
  Weight: 79.4 kg

DRUGS (4)
  1. VIAGRA [Suspect]
     Indication: ERECTILE DYSFUNCTION
     Route: 048
     Dates: start: 20010101
  2. METFORMIN HCL [Concomitant]
  3. TRAMADOL HCL [Concomitant]
  4. TEMAZEPAM [Concomitant]

REACTIONS (5)
  - EYE DISORDER [None]
  - EYE PAIN [None]
  - LACRIMATION INCREASED [None]
  - THERAPEUTIC RESPONSE DELAYED [None]
  - TYPE 2 DIABETES MELLITUS [None]
